FAERS Safety Report 17521489 (Version 2)
Quarter: 2020Q2

REPORT INFORMATION
  Report Type: Spontaneous
  Country: DE (occurrence: DE)
  Receive Date: 20200310
  Receipt Date: 20200512
  Transmission Date: 20200713
  Serious: Yes (Other)
  Sender: FDA-Public Use
  Company Number: DE-MYLANLABS-2020M1024610

PATIENT
  Sex: Female

DRUGS (4)
  1. RANITIDINE. [Suspect]
     Active Substance: RANITIDINE
     Indication: PRODUCT USED FOR UNKNOWN INDICATION
     Dosage: 150 MILLIGRAM, 2X150 MG
     Dates: start: 2016
  2. DOXEPIN [Concomitant]
     Active Substance: DOXEPIN
     Dosage: UNK
  3. RANITIDINE. [Suspect]
     Active Substance: RANITIDINE
     Dosage: WITH REDUCED DOSE
  4. RANITIDINE. [Suspect]
     Active Substance: RANITIDINE
     Dosage: 150 MILLIGRAM, 150 MGX1
     Route: 065

REACTIONS (6)
  - Diarrhoea [Unknown]
  - Therapy change [Unknown]
  - Anaphylactic shock [Unknown]
  - Pain [Unknown]
  - Product supply issue [Unknown]
  - Depression [Unknown]
